FAERS Safety Report 13789410 (Version 7)
Quarter: 2017Q3

REPORT INFORMATION
  Report Type: Spontaneous
  Country: US (occurrence: US)
  Receive Date: 20170725
  Receipt Date: 20170908
  Transmission Date: 20171127
  Serious: Yes (Hospitalization, Other)
  Sender: FDA-Public Use
  Company Number: US-PFIZER INC-2017291096

PATIENT
  Age: 78 Year
  Sex: Female

DRUGS (21)
  1. TRAMADOL. [Concomitant]
     Active Substance: TRAMADOL
     Indication: BREAKTHROUGH PAIN
     Dosage: 50 MG, AS NEEDED (1 TAB 2 TIMES A DAY)
     Route: 048
  2. ESCITALOPRAM [Concomitant]
     Active Substance: ESCITALOPRAM OXALATE
     Dosage: 10 MG, 1X/DAY (1 TAB)
     Route: 048
  3. CALCIUM 600+D [Concomitant]
     Active Substance: CALCIUM\VITAMIN D
     Dosage: UNK UNK, 1X/DAY
     Route: 048
  4. ALENDRONATE [Concomitant]
     Active Substance: ALENDRONATE SODIUM
     Dosage: 70 MG, WEEKLY  (ONCE AWEEK)
     Route: 048
  5. ZOFRAN [Concomitant]
     Active Substance: ONDANSETRON HYDROCHLORIDE
     Indication: VOMITING
  6. LEXAPRO [Concomitant]
     Active Substance: ESCITALOPRAM OXALATE
     Indication: DEPRESSION
     Dosage: 10 MG, DAILY
  7. HYDROXYZINE HYDROCHLORIDE. [Concomitant]
     Active Substance: HYDROXYZINE HYDROCHLORIDE
     Indication: PRURITUS
     Dosage: 25 MG, AS NEEDED (1 TAB EVERY 6 HOURS)
     Route: 048
  8. PRILOSEC [Concomitant]
     Active Substance: OMEPRAZOLE MAGNESIUM
     Dosage: 40 MG, 1X/DAY (1 CAP PER DAY)
     Route: 048
  9. AMBIEN [Concomitant]
     Active Substance: ZOLPIDEM TARTRATE
     Indication: INSOMNIA
     Dosage: 10 MG, AS NEEDED (1 TAB ONCE A DAY (AT BEDTIME))
     Route: 048
  10. SUTENT [Suspect]
     Active Substance: SUNITINIB MALATE
     Dosage: 25 MG, ALTERNATE DAY
     Route: 048
     Dates: start: 20170723
  11. HYDROCODONE/ACETAMINOPHEN [Concomitant]
     Active Substance: ACETAMINOPHEN\HYDROCODONE
     Indication: PAIN
     Dosage: UNK UNK, AS NEEDED (1 TAB EVERY 6 HOURS)(HYDROCODONE BITARTRATE: 5MG)-( PARACETAMOL: 325MG)
     Route: 048
  12. AMLODIPINE [Concomitant]
     Active Substance: AMLODIPINE BESYLATE
     Indication: HYPERTENSION
     Dosage: 5 MG, 1X/DAY (1 TAB)
     Route: 048
  13. SUTENT [Suspect]
     Active Substance: SUNITINIB MALATE
     Indication: GASTROINTESTINAL STROMAL TUMOUR
     Dosage: 25 MG, DAILY
     Route: 048
     Dates: start: 20170518, end: 20170629
  14. TRAZODONE [Concomitant]
     Active Substance: TRAZODONE HYDROCHLORIDE
     Indication: DEPRESSION
     Dosage: 50 MG, DAILY (1 TAB ONCE A DAY)
     Route: 048
  15. IRON POLYSACCHARIDE [Concomitant]
     Indication: MINERAL SUPPLEMENTATION
     Dosage: 200 MG, 2X/DAY
     Route: 048
  16. SUTENT [Suspect]
     Active Substance: SUNITINIB MALATE
     Dosage: 25 MG, DAILY
     Route: 048
     Dates: start: 20170511
  17. BUTALBITAL, ACETAMINOPHEN, AND CAFFEINE [Concomitant]
     Active Substance: ACETAMINOPHEN\BUTALBITAL\CAFFEINE
     Indication: HEADACHE
     Dosage: 1 DF, AS NEEDED  (1 CAP, 3 TIMES A DAY)
     Route: 048
  18. IBUPROFEN. [Concomitant]
     Active Substance: IBUPROFEN
     Indication: PAIN
     Dosage: 400 MG, AS NEEDED (1 TAB 3 TIMES A DAY)
     Route: 048
  19. LIPITOR [Concomitant]
     Active Substance: ATORVASTATIN CALCIUM
     Dosage: 20 MG, 1X/DAY (1 TAB)
     Route: 048
  20. BACTRIM [Concomitant]
     Active Substance: SULFAMETHOXAZOLE\TRIMETHOPRIM
     Dosage: 1 DF, 2X/DAY (1 TAB 2 TIMES A DAY)
     Route: 048
  21. ZOFRAN [Concomitant]
     Active Substance: ONDANSETRON HYDROCHLORIDE
     Indication: NAUSEA
     Dosage: 4 MG, AS NEEDED (1 TAB EVERY 6 HOURS)
     Route: 048

REACTIONS (9)
  - Intervertebral disc degeneration [Recovered/Resolved]
  - Inappropriate antidiuretic hormone secretion [Recovered/Resolved]
  - Hypoaesthesia [Recovered/Resolved]
  - Platelet count decreased [Recovering/Resolving]
  - Pruritus generalised [Unknown]
  - Eye pain [Unknown]
  - Cough [Unknown]
  - Aphasia [Recovered/Resolved]
  - Headache [Unknown]

NARRATIVE: CASE EVENT DATE: 2017
